FAERS Safety Report 21334928 (Version 3)
Quarter: 2022Q4

REPORT INFORMATION
  Report Type: Report from Study
  Country: FR (occurrence: FR)
  Receive Date: 20220914
  Receipt Date: 20221102
  Transmission Date: 20230113
  Serious: No
  Sender: FDA-Public Use
  Company Number: FR-GILEAD-2022-0592938

PATIENT
  Sex: Female
  Weight: 58 kg

DRUGS (5)
  1. SACITUZUMAB GOVITECAN [Suspect]
     Active Substance: SACITUZUMAB GOVITECAN
     Indication: Triple negative breast cancer
     Dosage: 10 MG/KG, CYCLE 1; DAYS 1,8
     Route: 042
     Dates: start: 20220615, end: 20220622
  2. SACITUZUMAB GOVITECAN [Suspect]
     Active Substance: SACITUZUMAB GOVITECAN
     Dosage: 10 MG/KG, CYCLE 2; DAYS 1,8
     Route: 042
     Dates: start: 20220711, end: 20220718
  3. SACITUZUMAB GOVITECAN [Suspect]
     Active Substance: SACITUZUMAB GOVITECAN
     Dosage: 10 MG/KG, CYCLE 3; DAYS 1,8
     Route: 042
     Dates: start: 20220808, end: 20220816
  4. SACITUZUMAB GOVITECAN [Suspect]
     Active Substance: SACITUZUMAB GOVITECAN
     Dosage: 10 MG/KG, CYCLE 4; DAYS 1,8
     Route: 042
     Dates: start: 20220829, end: 20220905
  5. SACITUZUMAB GOVITECAN [Suspect]
     Active Substance: SACITUZUMAB GOVITECAN
     Dosage: 530 MG
     Route: 042
     Dates: end: 20220926

REACTIONS (2)
  - Inappropriate schedule of product administration [Unknown]
  - Off label use [Unknown]
